FAERS Safety Report 9365259 (Version 1)
Quarter: 2013Q2

REPORT INFORMATION
  Report Type: Spontaneous
  Country: US (occurrence: US)
  Receive Date: 20130625
  Receipt Date: 20130625
  Transmission Date: 20140414
  Serious: No
  Sender: FDA-Public Use
  Company Number: US-009507513-1306USA007005

PATIENT
  Sex: Female

DRUGS (2)
  1. AZASITE [Suspect]
     Indication: BLEPHARITIS
     Dosage: 1 GTT, BID
     Route: 047
     Dates: start: 20130509, end: 20130522
  2. AZASITE [Suspect]
     Indication: DEPOSIT EYE

REACTIONS (2)
  - Inappropriate schedule of drug administration [Unknown]
  - Thermal burn [Unknown]
